FAERS Safety Report 9138280 (Version 2)
Quarter: 2013Q1

REPORT INFORMATION
  Report Type: Spontaneous
  Country: GR (occurrence: GR)
  Receive Date: 20130305
  Receipt Date: 20130315
  Transmission Date: 20140127
  Serious: Yes (Death, Hospitalization, Other)
  Sender: FDA-Public Use
  Company Number: GR-RANBAXY-2013RR-65730

PATIENT
  Age: 72 Year
  Sex: Female

DRUGS (5)
  1. ESCITALOPRAM [Suspect]
     Indication: BIPOLAR DISORDER
     Dosage: 20 MG, QD
     Route: 065
  2. LITHIUM [Interacting]
     Indication: BIPOLAR DISORDER
     Dosage: 300 MG, TID
     Route: 065
  3. BUSPIRONE [Interacting]
     Indication: BIPOLAR DISORDER
     Dosage: 10 MG, QD
     Route: 065
  4. AMLODIPINE [Interacting]
     Indication: HYPERTENSION
     Dosage: 5 MG, QD
     Route: 065
  5. IRBESARTAN [Interacting]
     Indication: HYPERTENSION
     Dosage: 150 MG, QD
     Route: 065

REACTIONS (4)
  - Neuroleptic malignant syndrome [Fatal]
  - Cardio-respiratory arrest [Fatal]
  - Acute respiratory distress syndrome [Fatal]
  - Drug interaction [Fatal]
